FAERS Safety Report 25090454 (Version 1)
Quarter: 2025Q1

REPORT INFORMATION
  Report Type: Spontaneous
  Country: US (occurrence: US)
  Receive Date: 20250318
  Receipt Date: 20250318
  Transmission Date: 20250409
  Serious: No
  Sender: PFIZER
  Company Number: US-PFIZER INC-202500058054

PATIENT
  Age: 23 Year
  Sex: Male

DRUGS (1)
  1. SOMAVERT [Suspect]
     Active Substance: PEGVISOMANT
     Dosage: INJECT 20 MG UNDER THE SKIN ONCE DAILY
     Dates: start: 202409

REACTIONS (1)
  - Drug ineffective [Not Recovered/Not Resolved]
